FAERS Safety Report 9790174 (Version 2)
Quarter: 2014Q1

REPORT INFORMATION
  Report Type: Report from Study
  Country: CA (occurrence: CA)
  Receive Date: 20131231
  Receipt Date: 20140116
  Transmission Date: 20141002
  Serious: Yes (Other)
  Sender: FDA-Public Use
  Company Number: CA-JNJFOC-20131217576

PATIENT
  Sex: Male

DRUGS (11)
  1. SIMPONI [Suspect]
     Indication: ANKYLOSING SPONDYLITIS
     Dosage: 1 UNIT
     Route: 058
     Dates: start: 20130721
  2. SIMPONI [Suspect]
     Indication: ANKYLOSING SPONDYLITIS
     Dosage: 1 UNIT
     Route: 058
     Dates: start: 20130821
  3. SIMPONI [Suspect]
     Indication: ANKYLOSING SPONDYLITIS
     Dosage: 1 UNIT
     Route: 058
     Dates: start: 20130921
  4. SIMPONI [Suspect]
     Indication: ANKYLOSING SPONDYLITIS
     Dosage: 1 UNIT
     Route: 058
     Dates: start: 20131121
  5. SIMPONI [Suspect]
     Indication: ANKYLOSING SPONDYLITIS
     Dosage: 1 UNIT
     Route: 058
     Dates: start: 20131021
  6. SIMPONI [Suspect]
     Indication: ANKYLOSING SPONDYLITIS
     Dosage: 1 UNIT
     Route: 058
     Dates: start: 20130222
  7. TYLENOL ARTHRITIS [Concomitant]
     Dosage: 650 MG
     Route: 048
  8. PARIET [Concomitant]
     Dosage: 1 UNIT
     Route: 048
  9. LUPRON [Concomitant]
     Route: 030
     Dates: start: 20130722
  10. FLOMAX [Concomitant]
     Dosage: 1 UNIT
     Route: 048
  11. MEGACE [Concomitant]
     Dosage: 1 UNIT
     Route: 048

REACTIONS (1)
  - Prostate cancer metastatic [Not Recovered/Not Resolved]
